FAERS Safety Report 19901091 (Version 1)
Quarter: 2021Q3

REPORT INFORMATION
  Report Type: Spontaneous
  Country: US (occurrence: US)
  Receive Date: 20210930
  Receipt Date: 20210930
  Transmission Date: 20211014
  Serious: No
  Sender: FDA-Public Use
  Company Number: US-PFIZER INC-202101238929

PATIENT
  Age: 66 Year
  Sex: Male
  Weight: 86.18 kg

DRUGS (3)
  1. NARDIL [Suspect]
     Active Substance: PHENELZINE SULFATE
     Indication: MAJOR DEPRESSION
     Dosage: 60 MG, DAILY
     Dates: start: 1991, end: 2018
  2. DULOXETINE. [Concomitant]
     Active Substance: DULOXETINE
     Dosage: 90 MG, 1X/DAY
  3. VORTIOXETINE. [Concomitant]
     Active Substance: VORTIOXETINE
     Dosage: UNK

REACTIONS (1)
  - Weight increased [Unknown]
